FAERS Safety Report 8716129 (Version 4)
Quarter: 2013Q2

REPORT INFORMATION
  Report Type: Spontaneous
  Country: US (occurrence: US)
  Receive Date: 20120809
  Receipt Date: 20130411
  Transmission Date: 20140414
  Serious: Yes (Hospitalization, Other)
  Sender: FDA-Public Use
  Company Number: US-RB-043015-12

PATIENT
  Age: 0 Year
  Sex: Male

DRUGS (4)
  1. SUBOXONE TABLET [Suspect]
     Indication: DRUG DEPENDENCE
     Route: 064
     Dates: start: 201011
  2. SUBUTEX [Suspect]
     Indication: DRUG DEPENDENCE
     Dosage: 2-3 TIMES/DAILY
     Route: 064
     Dates: end: 20110823
  3. NICOTINE [Suspect]
     Indication: TOBACCO USER
     Dosage: DOSING DETAILS UNKNOWN
     Route: 064
  4. KLONOPIN [Suspect]
     Indication: ANXIETY
     Route: 064
     Dates: start: 201011

REACTIONS (5)
  - Premature baby [Recovered/Resolved]
  - Drug withdrawal syndrome neonatal [Recovered/Resolved]
  - Foetal exposure during pregnancy [Recovered/Resolved]
  - Infantile colic [Recovered/Resolved]
  - Poor weight gain neonatal [Recovered/Resolved]
